FAERS Safety Report 16099056 (Version 1)
Quarter: 2019Q1

REPORT INFORMATION
  Report Type: Spontaneous
  Country: AU (occurrence: AU)
  Receive Date: 20190321
  Receipt Date: 20190321
  Transmission Date: 20190418
  Serious: Yes (Hospitalization, Other)
  Sender: FDA-Public Use
  Company Number: AU-AMGEN-AUSSP2019040659

PATIENT
  Age: 90 Year
  Sex: Female

DRUGS (11)
  1. EPILIM [Concomitant]
     Active Substance: VALPROATE SODIUM
     Indication: EPILEPSY
  2. MAGMIN [Concomitant]
     Active Substance: MAGNESIUM ASPARTATE
     Dosage: 500 MILLIGRAM, BID
  3. VITAMIN D [Concomitant]
     Active Substance: CHOLECALCIFEROL
     Dosage: UNK UNK, QD
  4. FEXOFENADINE [Concomitant]
     Active Substance: FEXOFENADINE\FEXOFENADINE HYDROCHLORIDE
     Dosage: UNK UNK, BID
  5. FOSAMAX [Concomitant]
     Active Substance: ALENDRONATE SODIUM
     Dosage: UNK UNK, QWK
     Dates: start: 2009
  6. ATACAND [Concomitant]
     Active Substance: CANDESARTAN CILEXETIL
     Dosage: 8 MILLIGRAM, BID
  7. WARFARIN [Concomitant]
     Active Substance: WARFARIN
  8. PROLIA [Suspect]
     Active Substance: DENOSUMAB
     Indication: BONE DISORDER
     Dosage: 60 MILLIGRAM, Q6MO
     Route: 058
     Dates: start: 20160705
  9. COUMADIN [Concomitant]
     Active Substance: WARFARIN SODIUM
  10. KEPPRA [Concomitant]
     Active Substance: LEVETIRACETAM
     Indication: EPILEPSY
  11. ATACAND [Concomitant]
     Active Substance: CANDESARTAN CILEXETIL
     Dosage: 8 MILLIGRAM, BID

REACTIONS (3)
  - Cellulitis [Not Recovered/Not Resolved]
  - Transient ischaemic attack [Unknown]
  - Neoplasm malignant [Unknown]

NARRATIVE: CASE EVENT DATE: 2018
